FAERS Safety Report 5765771-0 (Version None)
Quarter: 2008Q2

REPORT INFORMATION
  Report Type: 
  Country: None (occurrence: None)
  Receive Date: 20080609
  Receipt Date: 20080609
  Transmission Date: 20081010
  Serious: Yes (Hospitalization)
  Sender: FDA-Public Use
  Company Number: None

PATIENT
  Age: 64 Year
  Sex: Male
  Weight: 108 kg

DRUGS (3)
  1. OXALIPLATIN [Suspect]
     Indication: OESOPHAGEAL CARCINOMA
     Dosage: 195.5 MG EVERY 2 WEEKS IV
     Route: 042
     Dates: start: 20070129, end: 20070228
  2. CAPECITABINE [Suspect]
     Indication: OESOPHAGEAL CARCINOMA
     Dosage: 2600 MG QD PO
     Route: 048
     Dates: start: 20070129, end: 20070309
  3. CAPECITABINE [Suspect]

REACTIONS (16)
  - ABDOMINAL PAIN [None]
  - ANASTOMOTIC LEAK [None]
  - BRONCHIAL FISTULA [None]
  - BRONCHOSCOPY ABNORMAL [None]
  - CHEST PAIN [None]
  - COUGH [None]
  - EXCESSIVE GRANULATION TISSUE [None]
  - HAEMOPTYSIS [None]
  - HAEMORRHAGE [None]
  - MEDIASTINAL ABSCESS [None]
  - OBSTRUCTION [None]
  - OESOPHAGEAL FISTULA [None]
  - PYREXIA [None]
  - SPUTUM ABNORMAL [None]
  - VOMITING [None]
  - WOUND INFECTION [None]
